FAERS Safety Report 6092468-2 (Version None)
Quarter: 2009Q1

REPORT INFORMATION
  Report Type: 
  Country: None (occurrence: None)
  Receive Date: 20090225
  Receipt Date: 20090217
  Transmission Date: 20090719
  Serious: Yes (Hospitalization)
  Sender: FDA-Public Use
  Company Number: US-MERCK-0901USA04141

PATIENT
  Age: 72 Year
  Sex: Male

DRUGS (13)
  1. JANUVIA [Suspect]
     Indication: TYPE 2 DIABETES MELLITUS
     Route: 048
     Dates: start: 20080914, end: 20081001
  2. JANUVIA [Suspect]
     Route: 048
     Dates: start: 20080101
  3. VYTORIN [Concomitant]
     Route: 048
     Dates: start: 20050818
  4. ACIPHEX [Concomitant]
     Route: 065
  5. FELODIPINE [Concomitant]
     Route: 065
  6. PERCOCET [Concomitant]
     Route: 065
  7. COLCHICINE [Concomitant]
     Route: 065
  8. DARVOCET-N 100 [Concomitant]
     Route: 065
  9. OMEGA-3 MARINE TRIGLYCERIDES [Concomitant]
     Route: 065
  10. ADVIL [Concomitant]
     Route: 065
  11. ASPIRIN [Concomitant]
     Route: 065
  12. CELEBREX [Concomitant]
     Route: 065
  13. CLENIL MODULITE [Concomitant]
     Route: 065

REACTIONS (6)
  - BLINDNESS UNILATERAL [None]
  - CATARACT NUCLEAR [None]
  - DRUG INEFFECTIVE [None]
  - OPTIC NEURITIS [None]
  - PARANEOPLASTIC SYNDROME [None]
  - TEMPORAL ARTERITIS [None]
